FAERS Safety Report 6523755-9 (Version None)
Quarter: 2009Q4

REPORT INFORMATION
  Report Type: 
  Country: None (occurrence: None)
  Receive Date: 20091231
  Receipt Date: 20091220
  Transmission Date: 20100525
  Serious: Yes (Other)
  Sender: FDA-Public Use
  Company Number: FR-PFIZER INC-2009314280

PATIENT
  Age: 54 Year
  Sex: Female

DRUGS (8)
  1. ATARAX [Suspect]
     Indication: ANXIETY
     Dosage: 100 MG, DAILY
     Route: 048
     Dates: end: 20091218
  2. ATARAX [Suspect]
     Dosage: 1400 MG, SINGLE
     Route: 048
     Dates: start: 20091219, end: 20091219
  3. ATARAX [Suspect]
     Dosage: 100 MG, DAILY
     Route: 048
     Dates: start: 20091220
  4. ESCITALOPRAM OXALATE [Concomitant]
     Indication: DEPRESSION
     Dosage: 20 MG, 1X/DAY
     Route: 048
  5. RIVOTRIL [Concomitant]
     Indication: INSOMNIA
     Dosage: 1 DF, 1X/DAY
     Route: 048
  6. STILNOX [Concomitant]
     Indication: INSOMNIA
     Dosage: 1 OR 2 DFS PER DAY
     Route: 048
  7. MEPRONIZINE [Concomitant]
     Indication: INSOMNIA
     Route: 048
  8. INIPOMP [Concomitant]
     Indication: GASTRIC DISORDER
     Route: 048

REACTIONS (4)
  - ANAEMIA [None]
  - INTENTIONAL OVERDOSE [None]
  - SUICIDE ATTEMPT [None]
  - TRANSAMINASES INCREASED [None]
